FAERS Safety Report 9716818 (Version 3)
Quarter: 2014Q2

REPORT INFORMATION
  Report Type: Report from Study
  Country: US (occurrence: US)
  Receive Date: 20131127
  Receipt Date: 20140617
  Transmission Date: 20141212
  Serious: Yes (Hospitalization, Other)
  Sender: FDA-Public Use
  Company Number: US-ABBVIE-13P-163-1171081-00

PATIENT
  Age: 78 Year
  Sex: Female
  Weight: 118.04 kg

DRUGS (11)
  1. HUMIRA [Suspect]
     Indication: PSORIASIS
     Route: 058
     Dates: start: 20110412, end: 201308
  2. UNKNOWN CREAM [Concomitant]
     Indication: PSORIASIS
     Dosage: APPLIED UP TO 2 TIMES A DAY TO PSORIASIS AFFECTED AREAS
  3. MYRBETRIQ [Concomitant]
     Indication: PRODUCT USED FOR UNKNOWN INDICATION
  4. MYRBETRIQ [Concomitant]
  5. MULTAQ [Concomitant]
     Indication: HEART RATE
  6. PERNAPLEX [Concomitant]
     Indication: MOBILITY DECREASED
  7. OMEGA 3 DHA [Concomitant]
     Indication: SUPPLEMENTATION THERAPY
     Dosage: DAILY
  8. NITROPLUS [Concomitant]
     Indication: SUPPLEMENTATION THERAPY
     Dosage: DAILY
  9. MESTIQUE [Concomitant]
     Indication: PRODUCT USED FOR UNKNOWN INDICATION
     Route: 048
  10. LASIX [Concomitant]
     Indication: PRODUCT USED FOR UNKNOWN INDICATION
     Dosage: DAILY
  11. POTASSIUM [Concomitant]
     Indication: PRODUCT USED FOR UNKNOWN INDICATION
     Dosage: DAILY
     Route: 048

REACTIONS (20)
  - Heart rate decreased [Not Recovered/Not Resolved]
  - Injection site pain [Not Recovered/Not Resolved]
  - Injection site haemorrhage [Not Recovered/Not Resolved]
  - Injection site vesicles [Not Recovered/Not Resolved]
  - Drug ineffective [Not Recovered/Not Resolved]
  - Psoriasis [Not Recovered/Not Resolved]
  - Urinary incontinence [Not Recovered/Not Resolved]
  - Body fat disorder [Unknown]
  - Surgery [Unknown]
  - Hypoaesthesia [Recovered/Resolved]
  - Abasia [Recovering/Resolving]
  - Memory impairment [Recovering/Resolving]
  - Suicidal ideation [Unknown]
  - Suicidal ideation [Unknown]
  - Suicidal ideation [Unknown]
  - Suicidal ideation [Unknown]
  - Pain [Unknown]
  - Muscle spasms [Unknown]
  - Inappropriate schedule of drug administration [Unknown]
  - Memory impairment [Unknown]
